FAERS Safety Report 6536786-X (Version None)
Quarter: 2010Q1

REPORT INFORMATION
  Report Type: 
  Country: None (occurrence: None)
  Receive Date: 20100105
  Receipt Date: 20091221
  Transmission Date: 20100710
  Serious: Yes (Hospitalization, Other)
  Sender: FDA-Public Use
  Company Number: 8024827

PATIENT
  Sex: Female
  Weight: 47 kg

DRUGS (4)
  1. CERTOLIZUMAB PEGOL (CERTOLIZUMAB PEGOL) [Suspect]
     Indication: CROHN'S DISEASE
     Dosage: (:1 SUBCUTANEOUS)
     Route: 058
     Dates: start: 20061104, end: 20061104
  2. ADALIMUMAB (ADALIMUMAB) [Suspect]
     Indication: CROHN'S DISEASE
  3. IMUREL /00001501/ [Concomitant]
  4. ZELITREX /01269701/ [Concomitant]

REACTIONS (4)
  - CONDITION AGGRAVATED [None]
  - CROHN'S DISEASE [None]
  - PNEUMONIA [None]
  - RASH [None]
